FAERS Safety Report 5019952-4 (Version None)
Quarter: 2006Q2

REPORT INFORMATION
  Report Type: 
  Country: None (occurrence: None)
  Receive Date: 20060601
  Receipt Date: 20060522
  Transmission Date: 20061013
  Serious: Yes (Hospitalization)
  Sender: FDA-Public Use
  Company Number: HQWYE364016MAY06

PATIENT
  Age: 23 Year
  Sex: Female

DRUGS (9)
  1. RAPAMUNE [Suspect]
     Indication: PROPHYLAXIS AGAINST TRANSPLANT REJECTION
     Dosage: SEE IMAGE
     Route: 048
     Dates: start: 20060204, end: 20060416
  2. RAPAMUNE [Suspect]
     Indication: PROPHYLAXIS AGAINST TRANSPLANT REJECTION
     Dosage: SEE IMAGE
     Route: 048
     Dates: start: 20060417, end: 20060501
  3. RAPAMUNE [Suspect]
     Indication: PROPHYLAXIS AGAINST TRANSPLANT REJECTION
     Dosage: SEE IMAGE
     Route: 048
     Dates: start: 20060502
  4. SULFAMETHOXAZOLE + TRIMETHOPRIM [Concomitant]
  5. FUROSEMIDE [Concomitant]
  6. AMLODIPINE [Concomitant]
  7. PROPANOLOL (PROPANOLOL) [Concomitant]
  8. OMEPRAZOLE [Concomitant]
  9. TACROLIMUS (TACROLIMUS) [Concomitant]

REACTIONS (2)
  - GRAFT DYSFUNCTION [None]
  - THROMBOTIC MICROANGIOPATHY [None]
